FAERS Safety Report 7748944-7 (Version None)
Quarter: 2011Q3

REPORT INFORMATION
  Report Type: 
  Country: None (occurrence: None)
  Receive Date: 20110909
  Receipt Date: 20110901
  Transmission Date: 20111222
  Serious: Yes (Hospitalization)
  Sender: FDA-Public Use
  Company Number: 2011SP041415

PATIENT
  Age: 84 Year
  Sex: Female

DRUGS (5)
  1. ENALAPRIL MALEATE [Suspect]
     Indication: HYPERTENSION
     Dosage: 5 MG;QD;PO 20 MG;QD; PO 10 MG;QD; PO
     Route: 048
     Dates: end: 20110527
  2. ENALAPRIL MALEATE [Suspect]
     Indication: HYPERTENSION
     Dosage: 5 MG;QD;PO 20 MG;QD; PO 10 MG;QD; PO
     Route: 048
     Dates: start: 20101013
  3. HALDOL [Suspect]
     Indication: PRODUCT USED FOR UNKNOWN INDICATION
     Dosage: ;PO
     Route: 048
     Dates: start: 20101001, end: 20110401
  4. MIRTAZAPINE [Suspect]
     Indication: PRODUCT USED FOR UNKNOWN INDICATION
     Dosage: ;PO
     Route: 048
     Dates: start: 20101001, end: 20110401
  5. PERINDOPRIL ERBUMINE [Concomitant]

REACTIONS (5)
  - PSYCHOMOTOR HYPERACTIVITY [None]
  - HYPONATRAEMIA [None]
  - ABNORMAL BEHAVIOUR [None]
  - SOMNOLENCE [None]
  - AGGRESSION [None]
